FAERS Safety Report 4542947-1 (Version None)
Quarter: 2004Q4

REPORT INFORMATION
  Report Type: 
  Country: None (occurrence: None)
  Receive Date: 20041229
  Receipt Date: 20041213
  Transmission Date: 20050328
  Serious: Yes (Death, Hospitalization)
  Sender: FDA-Public Use
  Company Number: 174195

PATIENT
  Age: 41 Year
  Sex: Male
  Weight: 86.1834 kg

DRUGS (3)
  1. AVONEX [Suspect]
     Indication: MULTIPLE SCLEROSIS
     Dosage: 30 UG; QW; IM
     Route: 030
     Dates: start: 20021215, end: 20021215
  2. DIOVAN [Concomitant]
  3. CELEXA [Concomitant]

REACTIONS (1)
  - PNEUMONIA ASPIRATION [None]
